FAERS Safety Report 8054285-3 (Version None)
Quarter: 2012Q1

REPORT INFORMATION
  Report Type: 
  Country: None (occurrence: None)
  Receive Date: 20120118
  Receipt Date: 20120111
  Transmission Date: 20120608
  Serious: Yes (Other)
  Sender: FDA-Public Use
  Company Number: PHHY2011CA74319

PATIENT
  Sex: Male

DRUGS (2)
  1. CHEMOTHERAPEUTICS NOS [Concomitant]
  2. ZOMETA [Suspect]
     Indication: PROSTATE CANCER
     Dosage: 4 MG, EVERY FOUR WEEKS
     Route: 042
     Dates: start: 20110719, end: 20111201

REACTIONS (8)
  - INSOMNIA [None]
  - CYSTITIS [None]
  - CHILLS [None]
  - HEADACHE [None]
  - EPISTAXIS [None]
  - MOOD SWINGS [None]
  - RASH GENERALISED [None]
  - NAUSEA [None]
